FAERS Safety Report 22671390 (Version 2)
Quarter: 2025Q3

REPORT INFORMATION
  Report Type: Spontaneous
  Country: EU (occurrence: EU)
  Receive Date: 20230705
  Receipt Date: 20250930
  Transmission Date: 20251020
  Serious: Yes (Death, Life-Threatening, Hospitalization, Other)
  Sender: ALKEM
  Company Number: None

PATIENT
  Age: 35 Year
  Sex: Male
  Weight: 67 kg

DRUGS (12)
  1. PREGABALIN [Interacting]
     Active Substance: PREGABALIN
     Indication: Drug abuse
  2. AMPHETAMINE SULFATE [Interacting]
     Active Substance: AMPHETAMINE SULFATE
     Indication: Drug abuse
     Route: 065
  3. METHADONE HYDROCHLORIDE [Interacting]
     Active Substance: METHADONE HYDROCHLORIDE
     Indication: Drug abuse
     Route: 065
  4. CAFFEINE [Interacting]
     Active Substance: CAFFEINE
     Indication: Drug abuse
     Route: 065
  5. COCAINE [Interacting]
     Active Substance: COCAINE
     Indication: Drug abuse
     Route: 065
  6. DIAZEPAM [Interacting]
     Active Substance: DIAZEPAM
     Indication: Drug abuse
     Route: 065
  7. FENTANYL [Interacting]
     Active Substance: FENTANYL
     Indication: Drug abuse
     Route: 062
  8. FENTANYL [Interacting]
     Active Substance: FENTANYL
  9. NORDAZEPAM [Interacting]
     Active Substance: NORDAZEPAM
     Indication: Drug abuse
     Route: 065
  10. NORFENTANYL [Interacting]
     Active Substance: NORFENTANYL
     Indication: Drug abuse
     Route: 065
  11. TILIDINE [Interacting]
     Active Substance: TILIDINE
     Indication: Drug abuse
     Route: 065
  12. TRAMADOL [Interacting]
     Active Substance: TRAMADOL
     Indication: Drug abuse
     Route: 065

REACTIONS (12)
  - Toxicity to various agents [Fatal]
  - Congestive hepatopathy [Fatal]
  - Toxicity to various agents [Fatal]
  - Pulmonary oedema [Fatal]
  - Hepatomegaly [Fatal]
  - Brain oedema [Fatal]
  - Respiratory depression [Fatal]
  - Drug abuse [Fatal]
  - Incorrect route of product administration [Fatal]
  - Wrong technique in product usage process [Fatal]
  - Drug level increased [Unknown]
  - Drug interaction [Unknown]
